FAERS Safety Report 24900719 (Version 1)
Quarter: 2025Q1

REPORT INFORMATION
  Report Type: Spontaneous
  Country: FI (occurrence: FI)
  Receive Date: 20250129
  Receipt Date: 20250129
  Transmission Date: 20250409
  Serious: Yes (Disabling)
  Sender: LEO PHARM
  Company Number: None

PATIENT
  Age: 30 Year
  Sex: Female

DRUGS (4)
  1. PROTOPIC [Suspect]
     Active Substance: TACROLIMUS
     Indication: Dermatitis atopic
     Route: 003
     Dates: start: 2017, end: 2022
  2. MONTELUKAST SODIUM [Concomitant]
     Active Substance: MONTELUKAST SODIUM
     Indication: Asthma
     Dosage: 1 PER DAY
     Route: 048
     Dates: start: 2011
  3. LEVOCETIRIZIN RATIOPHARM [Concomitant]
     Indication: Hypersensitivity
     Dosage: 1 PER DAY
     Route: 048
     Dates: start: 2011
  4. BETAMETHASONE VALERATE [Suspect]
     Active Substance: BETAMETHASONE VALERATE
     Indication: Dermatitis atopic
     Route: 003
     Dates: start: 2015, end: 202309

REACTIONS (8)
  - Circadian rhythm sleep disorder [Recovering/Resolving]
  - Pruritus [Recovering/Resolving]
  - Topical steroid withdrawal reaction [Recovering/Resolving]
  - Impaired work ability [Recovering/Resolving]
  - Temperature regulation disorder [Recovering/Resolving]
  - Steroid dependence [Recovering/Resolving]
  - Alopecia [Recovering/Resolving]
  - Cortisol increased [Recovering/Resolving]

NARRATIVE: CASE EVENT DATE: 20220101
